FAERS Safety Report 14206409 (Version 2)
Quarter: 2017Q4

REPORT INFORMATION
  Report Type: Spontaneous
  Country: JP (occurrence: JP)
  Receive Date: 20171120
  Receipt Date: 20171218
  Transmission Date: 20180321
  Serious: Yes (Other)
  Sender: FDA-Public Use
  Company Number: JP-ELI_LILLY_AND_COMPANY-JP201711005507

PATIENT
  Age: 40 Year
  Sex: Male

DRUGS (5)
  1. LANTUS [Suspect]
     Active Substance: INSULIN GLARGINE
     Indication: TYPE 1 DIABETES MELLITUS
     Dosage: 15 IU, EACH EVENING
     Route: 058
     Dates: start: 201607, end: 201701
  2. HUMALOG [Suspect]
     Active Substance: INSULIN LISPRO
     Indication: TYPE 1 DIABETES MELLITUS
     Dosage: 10 IU, TID
     Route: 058
     Dates: start: 201607, end: 201701
  3. LANTUS [Suspect]
     Active Substance: INSULIN GLARGINE
     Dosage: 30 IU, EACH EVENING
     Route: 058
     Dates: start: 201701, end: 201701
  4. LANTUS [Suspect]
     Active Substance: INSULIN GLARGINE
     Dosage: 60 UNK, UNK
     Route: 058
     Dates: start: 201701
  5. HUMALOG [Suspect]
     Active Substance: INSULIN LISPRO
     Dosage: 25 IU, TID
     Route: 058
     Dates: start: 201701

REACTIONS (4)
  - Insulin resistance [Unknown]
  - Injection site induration [Unknown]
  - Hypoglycaemic unconsciousness [Unknown]
  - Hyperglycaemia [Unknown]

NARRATIVE: CASE EVENT DATE: 201701
